FAERS Safety Report 4835887-1 (Version None)
Quarter: 2005Q4

REPORT INFORMATION
  Report Type: 
  Country: None (occurrence: None)
  Receive Date: 20051123
  Receipt Date: 20051115
  Transmission Date: 20060501
  Serious: Yes (Hospitalization)
  Sender: FDA-Public Use
  Company Number: 2005UW17405

PATIENT
  Age: 64 Year
  Sex: Female
  Weight: 62.1 kg

DRUGS (4)
  1. NEXIUM [Suspect]
     Indication: GASTROOESOPHAGEAL REFLUX DISEASE
     Route: 048
  2. POTASSIUM [Concomitant]
  3. LASIX [Concomitant]
  4. ALBUTEROL [Concomitant]

REACTIONS (2)
  - DEHYDRATION [None]
  - DIARRHOEA [None]
